FAERS Safety Report 5144488-X (Version None)
Quarter: 2006Q4

REPORT INFORMATION
  Report Type: 
  Country: None (occurrence: None)
  Receive Date: 20061106
  Receipt Date: 20061101
  Transmission Date: 20070319
  Serious: Yes (Hospitalization)
  Sender: FDA-Public Use
  Company Number: US-BOEHRINGER INGELHEIM PHARMACEUTICALS, INC.-2006-BP-12783BP

PATIENT
  Age: 72 Year
  Sex: Male

DRUGS (5)
  1. SPIRIVA [Suspect]
     Indication: LUNG DISORDER
     Route: 055
     Dates: start: 20060401
  2. SYNTHROID [Concomitant]
  3. ASPIRIN [Concomitant]
  4. PULMICORT [Concomitant]
  5. LACTULOSE [Concomitant]

REACTIONS (3)
  - ANAPHYLACTIC SHOCK [None]
  - CONSTIPATION [None]
  - HEART RATE INCREASED [None]
